FAERS Safety Report 20809392 (Version 10)
Quarter: 2022Q4

REPORT INFORMATION
  Report Type: Spontaneous
  Country: US (occurrence: US)
  Receive Date: 20220510
  Receipt Date: 20221031
  Transmission Date: 20230113
  Serious: No
  Sender: FDA-Public Use
  Company Number: US-PFIZER INC-202200574447

PATIENT
  Age: 10 Year
  Sex: Female
  Weight: 27.67 kg

DRUGS (3)
  1. GENOTROPIN [Suspect]
     Active Substance: SOMATROPIN
     Indication: Growth hormone deficiency
     Dosage: 1.4 MG (EVERY NIGHT EXCEPT SUNDAY)
  2. GENOTROPIN [Suspect]
     Active Substance: SOMATROPIN
     Dosage: UNK
     Dates: start: 2021
  3. GENOTROPIN [Suspect]
     Active Substance: SOMATROPIN
     Dosage: 1.6 MG (6 DAYS A WEEK)

REACTIONS (3)
  - Device breakage [Unknown]
  - Device use issue [Unknown]
  - Drug dose omission by device [Unknown]
